FAERS Safety Report 8836689 (Version 1)
Quarter: 2012Q4

REPORT INFORMATION
  Report Type: Spontaneous
  Country: CA (occurrence: None)
  Receive Date: 20121010
  Receipt Date: 20121010
  Transmission Date: 20130627
  Serious: Yes (Death)
  Sender: FDA-Public Use
  Company Number: 2012AP003237

PATIENT
  Age: 32 Year
  Sex: Male

DRUGS (6)
  1. ATENOLOL [Suspect]
  2. FLUOXETINE [Suspect]
     Dosage: 50 MG; AM
  3. BENZOTROPINE [Suspect]
  4. CLOZARIL (CLOZAPINE) [Suspect]
     Dosage: 75 MG; AM
  5. METFORMIN [Suspect]
  6. LIPITOR (ATORVASTATIN CALCIUM) [Suspect]

REACTIONS (1)
  - Myocardial infarction [None]
